FAERS Safety Report 23114789 (Version 1)
Quarter: 2023Q4

REPORT INFORMATION
  Report Type: Spontaneous
  Country: US (occurrence: None)
  Receive Date: 20231026
  Receipt Date: 20231026
  Transmission Date: 20240110
  Serious: Yes (Life-Threatening, Hospitalization)
  Sender: FDA-Public Use
  Company Number: None

PATIENT
  Age: 59 Year
  Sex: Female

DRUGS (1)
  1. WARFARIN [Suspect]
     Active Substance: WARFARIN

REACTIONS (5)
  - Calciphylaxis [None]
  - Dialysis related complication [None]
  - Arteriovenous fistula site haemorrhage [None]
  - International normalised ratio increased [None]
  - Therapy cessation [None]

NARRATIVE: CASE EVENT DATE: 20230602
